FAERS Safety Report 7593873-5 (Version None)
Quarter: 2011Q3

REPORT INFORMATION
  Report Type: 
  Country: None (occurrence: None)
  Receive Date: 20110706
  Receipt Date: 20110630
  Transmission Date: 20111222
  Serious: Yes (Death)
  Sender: FDA-Public Use
  Company Number: PHHY2011BR58485

PATIENT
  Sex: Male

DRUGS (3)
  1. EXFORGE HCT [Suspect]
  2. GALVUS [Suspect]
     Dosage: 50 MG
  3. DIOVAN HCT [Suspect]

REACTIONS (1)
  - DEATH [None]
